FAERS Safety Report 7041502-1 (Version None)
Quarter: 2010Q4

REPORT INFORMATION
  Report Type: 
  Country: None (occurrence: None)
  Receive Date: 20101013
  Receipt Date: 20100209
  Transmission Date: 20110411
  Serious: No
  Sender: FDA-Public Use
  Company Number: US-ASTRAZENECA-2010SE05837

PATIENT
  Sex: Male
  Weight: 65.3 kg

DRUGS (4)
  1. SYMBICORT [Suspect]
     Indication: CHRONIC OBSTRUCTIVE PULMONARY DISEASE
     Dosage: 160/4.5
     Route: 055
     Dates: start: 20091201, end: 20091201
  2. LISINOPRIL [Concomitant]
  3. ALBUTEROL [Concomitant]
  4. O2 [Concomitant]

REACTIONS (1)
  - SLUGGISHNESS [None]
